FAERS Safety Report 7996746-9 (Version None)
Quarter: 2011Q4

REPORT INFORMATION
  Report Type: 
  Country: None (occurrence: None)
  Receive Date: 20111221
  Receipt Date: 20111208
  Transmission Date: 20120403
  Serious: Yes (Other)
  Sender: FDA-Public Use
  Company Number: US-BAYER-2011-118388

PATIENT
  Age: 43 Year
  Sex: Female
  Weight: 76.644 kg

DRUGS (3)
  1. MIRENA [Suspect]
     Indication: CONTRACEPTION
     Dosage: 20 ?G/D, CONT
     Route: 015
     Dates: start: 20061101
  2. LEVOTHYROXINE SODIUM [Concomitant]
     Dosage: 100 MCG/24HR, QD
     Route: 048
  3. PRISTIQ [Concomitant]
     Dosage: 50 MG, QD
     Route: 048

REACTIONS (5)
  - DEVICE BREAKAGE [None]
  - COMPLICATION OF DEVICE REMOVAL [None]
  - AMENORRHOEA [None]
  - DEVICE COMPONENT ISSUE [None]
  - DEVICE DISLOCATION [None]
